FAERS Safety Report 25135285 (Version 1)
Quarter: 2025Q1

REPORT INFORMATION
  Report Type: Spontaneous
  Country: CN (occurrence: CN)
  Receive Date: 20250328
  Receipt Date: 20250328
  Transmission Date: 20250409
  Serious: Yes (Other)
  Sender: BAYER HEALTHCARE PHARMACEUTICALS INC.
  Company Number: CN-BAYER-2025A038946

PATIENT
  Age: 7 Year
  Sex: Male

DRUGS (1)
  1. GADOBUTROL [Suspect]
     Active Substance: GADOBUTROL
     Indication: Magnetic resonance imaging
     Route: 042
     Dates: start: 20250311, end: 20250311

REACTIONS (4)
  - Contrast media allergy [Recovered/Resolved]
  - Blood pressure decreased [Recovered/Resolved]
  - Pruritus [Recovered/Resolved]
  - Heart rate increased [None]

NARRATIVE: CASE EVENT DATE: 20250311
